FAERS Safety Report 4613577-8 (Version None)
Quarter: 2005Q1

REPORT INFORMATION
  Report Type: 
  Country: None (occurrence: None)
  Receive Date: 20050315
  Receipt Date: 20050301
  Transmission Date: 20050727
  Serious: Yes (Hospitalization)
  Sender: FDA-Public Use
  Company Number: A02200500528

PATIENT
  Age: 63 Year
  Sex: Female

DRUGS (1)
  1. KAYEXALATE [Suspect]
     Dosage: 15 G QID; ORAL
     Route: 048
     Dates: start: 20040404

REACTIONS (1)
  - COLITIS ISCHAEMIC [None]
